FAERS Safety Report 16887084 (Version 1)
Quarter: 2019Q4

REPORT INFORMATION
  Report Type: Spontaneous
  Country: DE (occurrence: DE)
  Receive Date: 20191004
  Receipt Date: 20191004
  Transmission Date: 20200122
  Serious: Yes (Death, Life-Threatening, Other)
  Sender: FDA-Public Use
  Company Number: DE-PURDUE PHARMA-GBR-2019-0071105

PATIENT
  Age: 34 Year
  Sex: Male
  Weight: 132 kg

DRUGS (12)
  1. STANOZOLOL [Suspect]
     Active Substance: STANOZOLOL
     Indication: MUSCLE BUILDING THERAPY
     Dosage: STRENGTH 10MG
     Route: 065
  2. DROSTANOLONE [Suspect]
     Active Substance: DROMOSTANOLONE
     Indication: MUSCLE BUILDING THERAPY
     Dosage: UNK
     Route: 065
  3. METANDIENONE [Suspect]
     Active Substance: METHANDROSTENOLONE
     Indication: MUSCLE BUILDING THERAPY
     Dosage: UNK
     Route: 065
  4. THEOPHYLLINE [Suspect]
     Active Substance: THEOPHYLLINE ANHYDROUS
     Indication: PRODUCT USED FOR UNKNOWN INDICATION
     Dosage: UNK
     Route: 065
  5. CAFFEINE. [Suspect]
     Active Substance: CAFFEINE
     Indication: PRODUCT USED FOR UNKNOWN INDICATION
     Dosage: UNK
     Route: 065
  6. THYBON [Suspect]
     Active Substance: LIOTHYRONINE
     Indication: DRUG ABUSE
     Dosage: STRENGTH 100 (UNK)
     Route: 065
  7. TESTOSTERONE ENANTHATE. [Suspect]
     Active Substance: TESTOSTERONE ENANTHATE
     Indication: MUSCLE BUILDING THERAPY
     Dosage: STRENGTH 250 MG/ML
     Route: 065
  8. TRENBOLONE [Suspect]
     Active Substance: TRENBOLONE
     Indication: MUSCLE BUILDING THERAPY
     Dosage: STRENGTH 100MG
     Route: 065
  9. CLOMIPHENE                         /00061301/ [Suspect]
     Active Substance: CLOMIPHENE
     Indication: MUSCLE BUILDING THERAPY
     Dosage: STRENGTH 50MG
     Route: 065
  10. TESTOSTERONE PROPIONATE. [Suspect]
     Active Substance: TESTOSTERONE PROPIONATE
     Indication: PERFORMANCE ENHANCING PRODUCT USE
     Dosage: STRENGTH 100 MG/ML
     Route: 065
  11. SPIROPENT [Suspect]
     Active Substance: CLENBUTEROL HYDROCHLORIDE
     Indication: MUSCLE BUILDING THERAPY
     Dosage: STRENGTH 0.02 MG
     Route: 065
  12. CLOMIPHENE CITRATE. [Suspect]
     Active Substance: CLOMIPHENE CITRATE
     Indication: MUSCLE BUILDING THERAPY
     Dosage: STRENGTH 50 MG
     Route: 065

REACTIONS (10)
  - Intentional product misuse [Fatal]
  - Drug abuse [Fatal]
  - Brain oedema [Fatal]
  - Pulmonary oedema [Fatal]
  - Pulmonary congestion [Fatal]
  - Ventricular enlargement [Fatal]
  - Multiple organ dysfunction syndrome [Fatal]
  - Cardiac failure [Fatal]
  - Left ventricular hypertrophy [Fatal]
  - Pulmonary haemorrhage [Fatal]
